FAERS Safety Report 8563434-X (Version None)
Quarter: 2012Q3

REPORT INFORMATION
  Report Type: 
  Country: None (occurrence: None)
  Receive Date: 20120802
  Receipt Date: 20120727
  Transmission Date: 20120928
  Serious: Yes (Hospitalization)
  Sender: FDA-Public Use
  Company Number: FR-AMGEN-FRASP2012018326

PATIENT
  Age: 80 Year
  Sex: Male

DRUGS (6)
  1. MAG 2                              /00454301/ [Suspect]
     Indication: MINERAL SUPPLEMENTATION
     Dosage: 2 DF, QD
     Route: 048
     Dates: start: 20111224, end: 20120106
  2. PRAVASTATIN SODIUM [Suspect]
     Indication: DYSLIPIDAEMIA
     Dosage: 40 MG, UNK
     Route: 048
     Dates: start: 20111224
  3. ARANESP [Suspect]
     Indication: ANAEMIA
     Dosage: 30 MUG, QWK
     Route: 058
     Dates: start: 20111025, end: 20120116
  4. DIAMICRON [Suspect]
     Indication: DIABETES MELLITUS
     Dosage: 30 MG, QD
     Route: 048
     Dates: start: 20120109, end: 20120208
  5. INVANZ [Suspect]
     Indication: INFECTION
     Dosage: 1 G, UNK
     Route: 030
     Dates: start: 20111226, end: 20120116
  6. DIAMICRON [Suspect]
     Dosage: 60 MG, QD
     Dates: start: 20120209

REACTIONS (1)
  - PANCYTOPENIA [None]
